FAERS Safety Report 11067886 (Version 1)
Quarter: 2015Q2

REPORT INFORMATION
  Report Type: Spontaneous
  Country: US (occurrence: None)
  Receive Date: 20150424
  Receipt Date: 20150424
  Transmission Date: 20150821
  Serious: No
  Sender: FDA-Public Use
  Company Number: None

PATIENT
  Sex: Female
  Weight: 57.61 kg

DRUGS (3)
  1. SLEEP-AID [Concomitant]
     Active Substance: DIPHENHYDRAMINE HYDROCHLORIDE
  2. ESTRADIOL. [Concomitant]
     Active Substance: ESTRADIOL
  3. LYRICA [Suspect]
     Active Substance: PREGABALIN
     Indication: FIBROMYALGIA
     Dosage: 100 ONE CAPSULE TWICE DAILY MOUTH
     Route: 048
     Dates: start: 20150220, end: 20150412

REACTIONS (1)
  - Tremor [None]
